FAERS Safety Report 8798525 (Version 3)
Quarter: 2013Q2

REPORT INFORMATION
  Report Type: Report from Study
  Country: JP (occurrence: JP)
  Receive Date: 20120920
  Receipt Date: 20130625
  Transmission Date: 20140414
  Serious: Yes (Hospitalization, Other)
  Sender: FDA-Public Use
  Company Number: JP-VERTEX PHARMACEUTICAL INC.-AE-2012-008715

PATIENT
  Age: 66 Year
  Sex: Male

DRUGS (20)
  1. VX-950 (TELAPREVIR) [Suspect]
     Indication: CHRONIC HEPATITIS C
     Dosage: 2250 MG, QD
     Route: 048
     Dates: start: 20120306, end: 20120423
  2. VX-950 (TELAPREVIR) [Suspect]
     Dosage: 1500 MG, QD
     Route: 048
     Dates: start: 20120424, end: 20120507
  3. VX-950 (TELAPREVIR) [Suspect]
     Dosage: 1000 MG, QD
     Route: 048
     Dates: start: 20120508, end: 20120528
  4. RIBAVIRIN [Suspect]
     Indication: CHRONIC HEPATITIS C
     Dosage: 600 MG, QD
     Route: 048
     Dates: start: 20120306, end: 20120318
  5. RIBAVIRIN [Suspect]
     Dosage: 400 MG, QD
     Route: 048
     Dates: start: 20120319, end: 20120430
  6. RIBAVIRIN [Suspect]
     Dosage: 200 MG, QD
     Route: 048
     Dates: start: 20120501, end: 20120528
  7. RIBAVIRIN [Suspect]
     Dosage: 400 MG, QD
     Route: 048
     Dates: start: 20120529, end: 20120821
  8. PEGINTRON [Suspect]
     Indication: CHRONIC HEPATITIS C
     Dosage: 1.8 ?G/KG, QW
     Route: 058
     Dates: start: 20120306, end: 20120513
  9. PEGINTRON [Suspect]
     Dosage: 1.4 ?G/KG, QW
     Route: 058
     Dates: start: 20120514, end: 20120814
  10. REBAMIPIDE [Concomitant]
     Dosage: 200 MG, QD
     Route: 048
  11. MAINHEART [Concomitant]
     Dosage: 2.5 MG, QD
     Route: 048
     Dates: end: 20120323
  12. EPADEL S [Concomitant]
     Dosage: 1200 MG, QD
     Route: 048
     Dates: start: 20120306, end: 20120820
  13. ACINON (AGENTS FOR PEPTIC ULCER) [Concomitant]
     Dosage: 300 MG, QD
     Route: 048
     Dates: start: 20120306
  14. PROMAC [Concomitant]
     Dosage: 150 MG, QD
     Route: 048
     Dates: start: 20120306, end: 20120820
  15. LENDEM D [Concomitant]
     Dosage: 0.25 MG, QD
     Route: 048
     Dates: start: 20120307, end: 20120820
  16. ELIETEN [Concomitant]
     Dosage: 10 MG, QD
     Route: 048
     Dates: start: 20120313, end: 20120820
  17. NU-LOTAN [Concomitant]
     Dosage: 50 MG, QD
     Route: 048
     Dates: start: 20120427
  18. UBIRON [Concomitant]
     Dosage: 200 MG, QD
     Route: 048
  19. FEROTYM [Concomitant]
     Dosage: 100 MG, QD
     Route: 048
     Dates: end: 20120617
  20. FEROTYM [Concomitant]
     Dosage: 50 MG, QD
     Route: 048
     Dates: start: 20120618, end: 20120703

REACTIONS (2)
  - Renal impairment [Recovered/Resolved]
  - Haemoglobin decreased [Recovered/Resolved]
